FAERS Safety Report 5494641-0 (Version None)
Quarter: 2007Q4

REPORT INFORMATION
  Report Type: 
  Country: None (occurrence: None)
  Receive Date: 20071023
  Receipt Date: 20071023
  Transmission Date: 20080405
  Serious: Yes (Other)
  Sender: FDA-Public Use
  Company Number: None

PATIENT
  Age: 42 Year
  Sex: Female
  Weight: 57.1532 kg

DRUGS (1)
  1. CHANTIX [Suspect]
     Indication: SMOKING CESSATION THERAPY
     Dosage: 0.5 MG  1X/DAY FOR 1 WEEK;  1 MG 1X/DAY FOR APP. 3W
     Dates: start: 20070721, end: 20070814

REACTIONS (5)
  - AMNESIA [None]
  - BALANCE DISORDER [None]
  - NERVOUS SYSTEM DISORDER [None]
  - NIGHTMARE [None]
  - PERSONALITY CHANGE [None]
